FAERS Safety Report 16798075 (Version 2)
Quarter: 2020Q4

REPORT INFORMATION
  Report Type: Spontaneous
  Country: US (occurrence: US)
  Receive Date: 20190912
  Receipt Date: 20201015
  Transmission Date: 20210113
  Serious: Yes (Death, Life-Threatening, Hospitalization, Other)
  Sender: FDA-Public Use
  Company Number: US-SUN PHARMACEUTICAL INDUSTRIES LTD-2019R1-219896

PATIENT
  Age: 16 Year
  Sex: Female
  Weight: 70 kg

DRUGS (1)
  1. FERROUS SULFATE. [Suspect]
     Active Substance: FERROUS SULFATE
     Indication: PRODUCT USED FOR UNKNOWN INDICATION
     Dosage: 100 TABLETS, UNK
     Route: 048

REACTIONS (13)
  - Shock [Unknown]
  - Hypoglycaemia [Unknown]
  - Hepatic failure [Unknown]
  - Mental status changes [Unknown]
  - Metabolic acidosis [Unknown]
  - Anaemia [Unknown]
  - Multiple organ dysfunction syndrome [Fatal]
  - Overdose [Unknown]
  - Pallor [Unknown]
  - Thrombocytopenia [Unknown]
  - Sepsis [Fatal]
  - Lethargy [Unknown]
  - Coagulopathy [Unknown]
